FAERS Safety Report 15423743 (Version 9)
Quarter: 2021Q4

REPORT INFORMATION
  Report Type: Spontaneous
  Country: NL (occurrence: NL)
  Receive Date: 20180925
  Receipt Date: 20211027
  Transmission Date: 20220303
  Serious: Yes (Hospitalization, Other)
  Sender: FDA-Public Use
  Company Number: NL-AUROBINDO-AUR-APL-2018-046309

PATIENT
  Age: 87 Year
  Sex: Male

DRUGS (9)
  1. ALFUZOSIN [Suspect]
     Active Substance: ALFUZOSIN
     Indication: Cardiac failure
     Dosage: UNK
     Route: 065
  2. FUROSEMIDE [Suspect]
     Active Substance: FUROSEMIDE
     Indication: Cardiac failure
     Dosage: UNK
     Route: 065
  3. HYDROCHLOROTHIAZIDE [Suspect]
     Active Substance: HYDROCHLOROTHIAZIDE
     Indication: Cardiac failure
     Dosage: UNK
     Route: 065
  4. SOTALOL [Suspect]
     Active Substance: SOTALOL
     Indication: Cardiac failure
     Dosage: UNK, IN HIGH DOSE
     Route: 065
  5. TELMISARTAN [Suspect]
     Active Substance: TELMISARTAN
     Indication: Cardiac failure
     Dosage: UNK, HIGHEST DOSE (IN MAXIMUM DOSAGE)
     Route: 065
  6. DUTASTERIDE\TAMSULOSIN [Suspect]
     Active Substance: DUTASTERIDE\TAMSULOSIN
     Indication: Cardiac failure
     Dosage: UNK
     Route: 065
  7. TELMISARTAN [Suspect]
     Active Substance: TELMISARTAN
     Indication: Cardiac failure
     Dosage: UNK, HIGHEST DOSE
     Route: 065
  8. SOTALOL [Suspect]
     Active Substance: SOTALOL
     Indication: Cardiac failure
     Dosage: UNK, HIGH DOSE
     Route: 065
  9. ALFUZOSIN [Suspect]
     Active Substance: ALFUZOSIN
     Indication: Cardiac failure
     Dosage: UNK
     Route: 065

REACTIONS (10)
  - Hyperhidrosis [Recovered/Resolved]
  - Mental disorder [Recovered/Resolved]
  - Pallor [Recovered/Resolved]
  - Incontinence [Recovered/Resolved]
  - Dissociation [Recovered/Resolved]
  - Petit mal epilepsy [Recovered/Resolved]
  - Blood pressure decreased [Unknown]
  - Loss of consciousness [Recovered/Resolved]
  - Daydreaming [Unknown]
  - Staring [Unknown]
